FAERS Safety Report 7655838-4 (Version None)
Quarter: 2011Q3

REPORT INFORMATION
  Report Type: 
  Country: None (occurrence: None)
  Receive Date: 20110804
  Receipt Date: 20110725
  Transmission Date: 20111222
  Serious: Yes (Life-Threatening)
  Sender: FDA-Public Use
  Company Number: JP-MONARCH-K201100871

PATIENT
  Age: 56 Year
  Sex: Female
  Weight: 49 kg

DRUGS (15)
  1. SYNERCID [Suspect]
     Dosage: 1080 MG, QD
     Route: 041
     Dates: start: 20110628, end: 20110721
  2. POTASSIUM GLUCONATE TAB [Concomitant]
     Dosage: 32 U, QD
     Route: 048
  3. ADONA [Concomitant]
     Dosage: 100 MG, QD
  4. VALPROATE SODIUM [Concomitant]
     Dosage: 168 ML, QD
  5. TRANSAMIN [Concomitant]
     Dosage: 1000 MG, QD
  6. ASPIRIN [Concomitant]
     Dosage: 100 MG, QD
     Route: 048
  7. CLONAZEPAM [Concomitant]
     Dosage: 2 MG, QD
     Route: 048
  8. RIFAMPICIN [Concomitant]
     Dosage: 450 MG, QD
  9. NORVASC [Concomitant]
     Dosage: 2.5 MG, QD
     Route: 048
  10. PLAVIX [Concomitant]
     Dosage: 75 MG, QD
     Route: 048
  11. PREDNISOLONE [Concomitant]
     Dosage: 10 MG, QD
     Route: 048
  12. PROTECADIN [Concomitant]
     Dosage: 10 MG, QD
     Route: 048
  13. MIYA BM [Concomitant]
     Dosage: 6 TABLETS, QD
     Route: 048
  14. LEVETIRACETAM [Concomitant]
     Dosage: 500 MG, QD
  15. PHENYTOIN SODIUM CAP [Concomitant]
     Dosage: 125 MG, QD

REACTIONS (1)
  - PLATELET COUNT DECREASED [None]
